FAERS Safety Report 10345768 (Version 2)
Quarter: 2014Q4

REPORT INFORMATION
  Report Type: Spontaneous
  Country: IT (occurrence: IT)
  Receive Date: 20140728
  Receipt Date: 20141120
  Transmission Date: 20150528
  Serious: Yes (Hospitalization)
  Sender: FDA-Public Use
  Company Number: IT-TEVA-495716ISR

PATIENT
  Age: 29 Year
  Sex: Male

DRUGS (4)
  1. COPAXONE [Suspect]
     Active Substance: GLATIRAMER ACETATE
     Indication: RELAPSING-REMITTING MULTIPLE SCLEROSIS
     Dosage: 20 MILLIGRAM DAILY;
     Route: 058
     Dates: start: 20140501, end: 20140701
  2. GARDENALE 100 MG [Concomitant]
     Indication: SEDATION
     Dosage: 200 MILLIGRAM DAILY;
     Route: 048
     Dates: start: 20120701, end: 20140701
  3. VALIUM 5MG/ML [Concomitant]
     Indication: ANXIETY
     Dosage: 30 GTT DAILY;
     Dates: start: 20120701, end: 20140701
  4. HALDOL 2MG/ML [Concomitant]
     Indication: AGITATION
     Dosage: 14 GTT DAILY;
     Dates: start: 20120701, end: 20140701

REACTIONS (6)
  - Conjunctival haemorrhage [Recovering/Resolving]
  - Paraesthesia [Recovering/Resolving]
  - Seizure [Recovering/Resolving]
  - Loss of consciousness [Recovering/Resolving]
  - Epilepsy [Recovering/Resolving]
  - Vomiting [Recovering/Resolving]

NARRATIVE: CASE EVENT DATE: 20140701
